FAERS Safety Report 8162175-0 (Version None)
Quarter: 2012Q1

REPORT INFORMATION
  Report Type: 
  Country: None (occurrence: None)
  Receive Date: 20120224
  Receipt Date: 20110916
  Transmission Date: 20120608
  Serious: No
  Sender: FDA-Public Use
  Company Number: US-BRISTOL-MYERS SQUIBB COMPANY-16055550

PATIENT
  Age: 65 Year
  Sex: Female

DRUGS (3)
  1. GLUCOPHAGE [Suspect]
     Route: 048
  2. LANTUS [Suspect]
     Indication: TYPE 2 DIABETES MELLITUS
     Dosage: 1DF=90UNITS,INJ 100IU
     Route: 058
     Dates: start: 20060101
  3. NOVOLOG [Suspect]
     Dosage: 1DF=25UNITS
     Route: 065

REACTIONS (2)
  - PAIN IN EXTREMITY [None]
  - BLOOD GLUCOSE INCREASED [None]
